FAERS Safety Report 20909680 (Version 2)
Quarter: 2022Q3

REPORT INFORMATION
  Report Type: Spontaneous
  Country: US (occurrence: US)
  Receive Date: 20220603
  Receipt Date: 20220701
  Transmission Date: 20221027
  Serious: No
  Sender: FDA-Public Use
  Company Number: US-BAUSCH-BL-2022-012977

PATIENT
  Age: 74 Year
  Sex: Male

DRUGS (3)
  1. LOTEMAX SM [Suspect]
     Active Substance: LOTEPREDNOL ETABONATE
     Indication: Postoperative care
     Route: 047
     Dates: start: 20220524, end: 20220525
  2. TIMOLOL [Concomitant]
     Active Substance: TIMOLOL
     Indication: Product used for unknown indication
  3. LATANOPROST [Concomitant]
     Active Substance: LATANOPROST
     Indication: Product used for unknown indication

REACTIONS (3)
  - Application site pain [Not Recovered/Not Resolved]
  - Product use complaint [Unknown]
  - Product colour issue [Unknown]

NARRATIVE: CASE EVENT DATE: 20220524
